FAERS Safety Report 7417644-5 (Version None)
Quarter: 2011Q2

REPORT INFORMATION
  Report Type: 
  Country: None (occurrence: None)
  Receive Date: 20110415
  Receipt Date: 20110405
  Transmission Date: 20111010
  Serious: Yes (Other)
  Sender: FDA-Public Use
  Company Number: PHFR2010GB01213

PATIENT
  Sex: Female

DRUGS (5)
  1. CLOZARIL [Suspect]
     Indication: SCHIZOPHRENIA
     Dosage: 300MG/DAY
     Route: 048
     Dates: start: 20100625
  2. TEMAZEPAM [Concomitant]
     Indication: SLEEP DISORDER
     Dosage: 15MG/DAY
     Route: 048
  3. HYOSCINE HBR HYT [Concomitant]
     Indication: EXTRAPYRAMIDAL DISORDER
     Dosage: UNK
     Route: 048
  4. SULPIRIDE [Concomitant]
     Indication: MENTAL DISORDER
     Dosage: 400MG/DAY
     Route: 048
  5. MIRTAZAPINE [Concomitant]
     Indication: DEMENTIA
     Dosage: 45MG/DAY
     Route: 048

REACTIONS (3)
  - LYMPHOCYTE COUNT INCREASED [None]
  - LEUKAEMIA [None]
  - WHITE BLOOD CELL COUNT INCREASED [None]
